FAERS Safety Report 12885608 (Version 1)
Quarter: 2016Q4

REPORT INFORMATION
  Report Type: Spontaneous
  Country: US (occurrence: US)
  Receive Date: 20161026
  Receipt Date: 20161026
  Transmission Date: 20170207
  Serious: Yes (Hospitalization, Disabling)
  Sender: FDA-Public Use
  Company Number: None

PATIENT
  Age: 76 Year
  Sex: Male
  Weight: 106.69 kg

DRUGS (6)
  1. BABY ASPIRIN [Concomitant]
     Active Substance: ASPIRIN
  2. CORDARONE [Suspect]
     Active Substance: AMIODARONE HYDROCHLORIDE
     Indication: ATRIAL FIBRILLATION
     Route: 048
     Dates: start: 20110211, end: 20110815
  3. ARMUR THYROID [Concomitant]
  4. NIACIN. [Concomitant]
     Active Substance: NIACIN
  5. METOPROLOL. [Concomitant]
     Active Substance: METOPROLOL
  6. FISH OIL [Concomitant]
     Active Substance: FISH OIL

REACTIONS (15)
  - Tremor [None]
  - Hypotension [None]
  - Nervous system disorder [None]
  - Osteopenia [None]
  - Keratopathy [None]
  - Condition aggravated [None]
  - Cholelithiasis [None]
  - Neuropathy peripheral [None]
  - Cataract [None]
  - Anxiety [None]
  - Lung disorder [None]
  - Thyroiditis [None]
  - Economic problem [None]
  - Gastrointestinal disorder [None]
  - Hepatic steatosis [None]

NARRATIVE: CASE EVENT DATE: 20110815
